FAERS Safety Report 7705513-2 (Version None)
Quarter: 2011Q3

REPORT INFORMATION
  Report Type: 
  Country: None (occurrence: None)
  Receive Date: 20110823
  Receipt Date: 20110823
  Transmission Date: 20111222
  Serious: No
  Sender: FDA-Public Use
  Company Number: None

PATIENT
  Age: 65 Year
  Sex: Female
  Weight: 67 kg

DRUGS (1)
  1. REMICADE [Suspect]
     Indication: RHEUMATOID ARTHRITIS
     Dosage: 200MG IV @ 0, 2W, 6W Q 8WK

REACTIONS (6)
  - DYSPNOEA [None]
  - FEELING ABNORMAL [None]
  - CHEST DISCOMFORT [None]
  - FLUSHING [None]
  - MUSCLE SPASMS [None]
  - INFUSION RELATED REACTION [None]
